FAERS Safety Report 21591279 (Version 2)
Quarter: 2022Q4

REPORT INFORMATION
  Report Type: Spontaneous
  Country: US (occurrence: US)
  Receive Date: 20221114
  Receipt Date: 20221216
  Transmission Date: 20230113
  Serious: No
  Sender: FDA-Public Use
  Company Number: US-SA-SAC20221110002067

PATIENT
  Age: 69 Year
  Sex: Female

DRUGS (10)
  1. DUPIXENT [Suspect]
     Active Substance: DUPILUMAB
     Indication: Asthma
     Dosage: 300 MG, FREQUENCY: OTHER
     Route: 058
  2. PFIZER-BIONTECH COVID-19 VACCINE [Suspect]
     Active Substance: TOZINAMERAN
     Dosage: INJECTION SITE: ARM
     Dates: start: 20220930, end: 20220930
  3. ELIDEL [Concomitant]
     Active Substance: PIMECROLIMUS
     Dosage: 2X/DAY 1%
     Route: 061
     Dates: start: 20190604
  4. PREDNISONE [Concomitant]
     Active Substance: PREDNISONE
     Dosage: 5MG
     Route: 048
     Dates: start: 20220209
  5. EUCRISA [Concomitant]
     Active Substance: CRISABOROLE
     Dosage: 2% 2X1 DAY
     Route: 061
  6. PULMICORT TURBUHALER [Concomitant]
     Active Substance: BUDESONIDE
     Dosage: 90MGX2X2/DAY
  7. FLONASE [Concomitant]
     Active Substance: FLUTICASONE PROPIONATE
     Dosage: 1 SPRAY /DAY
  8. TRIAMCINOLONE ACETONIDE [Concomitant]
     Active Substance: TRIAMCINOLONE ACETONIDE
     Dosage: 1X/ 1DAY 5%
     Route: 061
     Dates: start: 20220209
  9. PROVENTIL [Concomitant]
     Active Substance: ALBUTEROL
     Dosage: 90MCG AS NEEDED
  10. PREDNISONE [Concomitant]
     Active Substance: PREDNISONE
     Indication: Asthma
     Dosage: 40MGX 4DAY
     Dates: start: 20221129

REACTIONS (3)
  - Peripheral swelling [Recovered/Resolved]
  - Myalgia [Unknown]
  - Arthralgia [Unknown]

NARRATIVE: CASE EVENT DATE: 20221010
